FAERS Safety Report 7170925-5 (Version None)
Quarter: 2010Q4

REPORT INFORMATION
  Report Type: 
  Country: None (occurrence: None)
  Receive Date: 20101217
  Receipt Date: 20101203
  Transmission Date: 20110411
  Serious: Yes (Hospitalization)
  Sender: FDA-Public Use
  Company Number: US-ELI_LILLY_AND_COMPANY-US201011000384

PATIENT
  Sex: Female
  Weight: 77.3 kg

DRUGS (24)
  1. PEMETREXED [Suspect]
     Indication: NON-SMALL CELL LUNG CANCER
     Dosage: 500 MG/M2, OTHER
     Route: 042
     Dates: start: 20100112, end: 20100929
  2. CARBOPLATIN [Suspect]
     Indication: NON-SMALL CELL LUNG CANCER
     Dosage: 6 D/F, OTHER
     Route: 042
     Dates: start: 20100112, end: 20100316
  3. BEVACIZUMAB [Suspect]
     Indication: NON-SMALL CELL LUNG CANCER
     Dosage: 15 MG/KG, OTHER
     Route: 042
     Dates: start: 20100112, end: 20100929
  4. VITAMIN B-12 [Concomitant]
     Dates: start: 20100105, end: 20100929
  5. FOLATE [Concomitant]
     Dates: start: 20100105
  6. COLACE [Concomitant]
     Indication: CONSTIPATION
     Dates: start: 20100119
  7. LYRICA [Concomitant]
     Indication: NEUROPATHY PERIPHERAL
     Dates: start: 20080101, end: 20101020
  8. LASIX [Concomitant]
     Indication: HYPERTENSION
     Dosage: 40 MG, UNKNOWN
     Dates: start: 20080101, end: 20101025
  9. GLYBURIDE AND METFORMIN HCL [Concomitant]
     Indication: DIABETES MELLITUS
     Dates: start: 19980101, end: 20101025
  10. KEFLEX [Concomitant]
     Indication: INFECTION
     Dates: start: 20101010
  11. LORAZEPAM [Concomitant]
     Indication: INSOMNIA
     Dosage: UNK, UNK
     Dates: start: 20100101
  12. FISH OIL [Concomitant]
     Indication: PROPHYLAXIS
     Dates: start: 20090901
  13. SIMVASTATIN [Concomitant]
     Indication: HYPERCHOLESTEROLAEMIA
     Dates: start: 20050101
  14. TRAMADOL HCL [Concomitant]
     Indication: PAIN
     Dates: start: 20090101
  15. ARTHROTEC [Concomitant]
     Indication: PAIN
     Dates: start: 20080101, end: 20101025
  16. CALCIUM [Concomitant]
     Indication: SUPPLEMENTATION THERAPY
     Dates: start: 20100105
  17. MILK OF MAGNESIA [Concomitant]
     Indication: CONSTIPATION
     Dates: start: 20100119
  18. MIRALAX [Concomitant]
     Indication: CONSTIPATION
     Dates: start: 20100119
  19. COMPAZINE [Concomitant]
     Indication: NAUSEA
     Dates: start: 20100112
  20. LISINOPRIL [Concomitant]
  21. HYDROCHLOROTHIAZIDE [Concomitant]
  22. ASPIRIN [Concomitant]
  23. CHANTIX [Concomitant]
  24. SPIRIVA [Concomitant]

REACTIONS (1)
  - NEPHROTIC SYNDROME [None]
